FAERS Safety Report 19768124 (Version 1)
Quarter: 2021Q3

REPORT INFORMATION
  Report Type: Spontaneous
  Country: FR (occurrence: FR)
  Receive Date: 20210831
  Receipt Date: 20210831
  Transmission Date: 20211014
  Serious: Yes (Hospitalization)
  Sender: FDA-Public Use
  Company Number: FR-TEVA-2021-FR-1946355

PATIENT
  Age: 76 Year
  Sex: Female
  Weight: 69 kg

DRUGS (8)
  1. CLOPIDOGREL (CHLORHYDRATE DE) [Suspect]
     Active Substance: CLOPIDOGREL HYDROCHLORIDE
     Dosage: 75 MG, THERAPY START DATE: ASKU
     Route: 048
     Dates: end: 20210712
  2. ROSUVASTATINE [Concomitant]
     Active Substance: ROSUVASTATIN
  3. COUMADINE 2 MG, COMPRIME SECABLE [Suspect]
     Active Substance: WARFARIN SODIUM
     Dosage: SCORED TABLET, 3 MG, THERAPY START DATE: ASKU
     Route: 048
     Dates: end: 20210712
  4. SPIRONOLACTONE. [Concomitant]
     Active Substance: SPIRONOLACTONE
  5. BISOPROLOL (FUMARATE DE) [Concomitant]
     Active Substance: BISOPROLOL FUMARATE
  6. PREDNISOLONE. [Concomitant]
     Active Substance: PREDNISOLONE
  7. FLUDROCORTISONE [Concomitant]
     Active Substance: FLUDROCORTISONE
  8. FUROSEMIDE. [Concomitant]
     Active Substance: FUROSEMIDE

REACTIONS (1)
  - Spontaneous haematoma [Recovering/Resolving]

NARRATIVE: CASE EVENT DATE: 20210712
